FAERS Safety Report 6538635-2 (Version None)
Quarter: 2010Q1

REPORT INFORMATION
  Report Type: 
  Country: None (occurrence: None)
  Receive Date: 20100115
  Receipt Date: 20100111
  Transmission Date: 20100710
  Serious: Yes (Death, Other)
  Sender: FDA-Public Use
  Company Number: AU-BIOGENIDEC-2009BI035873

PATIENT
  Age: 42 Year
  Sex: Female

DRUGS (1)
  1. TYSABRI [Suspect]
     Indication: RELAPSING-REMITTING MULTIPLE SCLEROSIS
     Route: 042
     Dates: start: 20080421, end: 20090515

REACTIONS (4)
  - CATHETER SITE INFECTION [None]
  - HYPOPHAGIA [None]
  - MULTIPLE SCLEROSIS [None]
  - SEPSIS [None]
